FAERS Safety Report 11808634 (Version 1)
Quarter: 2015Q4

REPORT INFORMATION
  Report Type: Spontaneous
  Country: US (occurrence: US)
  Receive Date: 20151207
  Receipt Date: 20151207
  Transmission Date: 20160305
  Serious: No
  Sender: FDA-Public Use
  Company Number: US-ROCHE-1624931

PATIENT
  Sex: Male

DRUGS (21)
  1. EPIPEN [Concomitant]
     Active Substance: EPINEPHRINE
     Dosage: 2-PAK, 0.3 MG/0.3 ML SOLUTION
     Route: 065
     Dates: start: 20150109
  2. LUCENTIS [Suspect]
     Active Substance: RANIBIZUMAB
     Route: 065
     Dates: start: 20150508, end: 20150728
  3. AMLODIPINE BESYLATE. [Concomitant]
     Active Substance: AMLODIPINE BESYLATE
     Route: 065
     Dates: start: 20121116, end: 20121117
  4. LABETALOL HCL [Concomitant]
     Active Substance: LABETALOL HYDROCHLORIDE
     Route: 065
     Dates: start: 20150709
  5. HUMIRA [Concomitant]
     Active Substance: ADALIMUMAB
     Dosage: PEN, 40 MG/0.8 ML
     Route: 058
     Dates: start: 20150709
  6. PENTASA [Concomitant]
     Active Substance: MESALAMINE
     Route: 048
  7. LABETALOL [Concomitant]
     Active Substance: LABETALOL\LABETALOL HYDROCHLORIDE
     Route: 048
  8. TYLENOL EXTRA STRENGTH [Concomitant]
     Active Substance: ACETAMINOPHEN
     Dosage: EVERY 4-6 HRS
     Route: 048
  9. AVASTIN [Suspect]
     Active Substance: BEVACIZUMAB
     Dosage: RIGHT EYE
     Route: 065
     Dates: start: 2012
  10. ASPIRIN. [Concomitant]
     Active Substance: ASPIRIN
     Route: 048
     Dates: start: 20150709
  11. LUCENTIS [Suspect]
     Active Substance: RANIBIZUMAB
     Indication: NEOVASCULAR AGE-RELATED MACULAR DEGENERATION
     Dosage: LEFT
     Route: 065
     Dates: start: 201505, end: 201506
  12. ZOFRAN ODT [Concomitant]
     Active Substance: ONDANSETRON HYDROCHLORIDE
     Route: 065
  13. LABETALOL HCL [Concomitant]
     Active Substance: LABETALOL HYDROCHLORIDE
     Route: 048
     Dates: start: 20121116, end: 20121117
  14. ATORVASTATIN [Concomitant]
     Active Substance: ATORVASTATIN
     Route: 048
  15. ASPIRIN. [Concomitant]
     Active Substance: ASPIRIN
     Dosage: EVERU 4- 6 HRS.
     Route: 048
  16. KENALOG [Concomitant]
     Active Substance: TRIAMCINOLONE ACETONIDE
     Dosage: 40 MG/ML
     Route: 065
  17. AMLODIPINE BESYLATE. [Concomitant]
     Active Substance: AMLODIPINE BESYLATE
     Route: 065
     Dates: start: 20150709
  18. CALCITRIOL. [Concomitant]
     Active Substance: CALCITRIOL
     Route: 048
  19. ZETIA [Concomitant]
     Active Substance: EZETIMIBE
     Route: 048
  20. LABETALOL [Concomitant]
     Active Substance: LABETALOL\LABETALOL HYDROCHLORIDE
     Route: 048
  21. AVASTIN [Suspect]
     Active Substance: BEVACIZUMAB
     Indication: PRODUCT USED FOR UNKNOWN INDICATION
     Dosage: LEFT EYE
     Route: 065
     Dates: start: 20150720

REACTIONS (3)
  - Dysphagia [Recovered/Resolved]
  - Speech disorder [Recovered/Resolved]
  - Swollen tongue [Recovered/Resolved]
